FAERS Safety Report 22036703 (Version 3)
Quarter: 2023Q1

REPORT INFORMATION
  Report Type: Spontaneous
  Country: US (occurrence: US)
  Receive Date: 20230225
  Receipt Date: 20230317
  Transmission Date: 20230417
  Serious: No
  Sender: FDA-Public Use
  Company Number: US-002147023-NVSC2023US044220

PATIENT
  Weight: 70.295 kg

DRUGS (1)
  1. LEQVIO [Suspect]
     Active Substance: INCLISIRAN SODIUM
     Indication: Arteriosclerosis
     Dosage: 284 MG/ 1.5 ML (1 INJECTION) (INITIAL DOSE, 3 MONTHS AFTER INITIAL DOSE)
     Route: 058
     Dates: start: 202301

REACTIONS (1)
  - Low density lipoprotein increased [Recovered/Resolved]
